FAERS Safety Report 10764174 (Version 1)
Quarter: 2015Q1

REPORT INFORMATION
  Report Type: Report from Study
  Country: CA (occurrence: CA)
  Receive Date: 20150204
  Receipt Date: 20150204
  Transmission Date: 20150721
  Serious: Yes (Other)
  Sender: FDA-Public Use
  Company Number: PHHY2015CA013667

PATIENT
  Age: 83 Year
  Sex: Female

DRUGS (4)
  1. ACLASTA [Suspect]
     Active Substance: ZOLEDRONIC ACID
     Indication: OSTEOPOROSIS
     Dosage: 5MG/100ML
     Route: 042
     Dates: start: 20081106
  2. ACLASTA [Suspect]
     Active Substance: ZOLEDRONIC ACID
     Dosage: 5MG/100ML
     Route: 042
     Dates: start: 20101222
  3. ACLASTA [Suspect]
     Active Substance: ZOLEDRONIC ACID
     Dosage: 5MG/100ML
     Route: 042
     Dates: start: 20111216
  4. ACLASTA [Suspect]
     Active Substance: ZOLEDRONIC ACID
     Dosage: 5/100ML
     Route: 042
     Dates: start: 20091116

REACTIONS (2)
  - Hip fracture [Unknown]
  - Influenza [Unknown]

NARRATIVE: CASE EVENT DATE: 201501
